FAERS Safety Report 4357967-X (Version None)
Quarter: 2004Q2

REPORT INFORMATION
  Report Type: 
  Country: None (occurrence: None)
  Receive Date: 20040510
  Receipt Date: 20040504
  Transmission Date: 20050107
  Serious: No
  Sender: FDA-Public Use
  Company Number: 2004-115691-NL

PATIENT
  Age: 36 Year
  Sex: Male

DRUGS (2)
  1. MIRTAZAPINE [Suspect]
     Indication: DEPRESSION
     Dosage: 30 MG
     Route: 048
     Dates: start: 20040317, end: 20040321
  2. VENLAFAXINE [Concomitant]

REACTIONS (5)
  - AGGRESSION [None]
  - ANGER [None]
  - FEELING ABNORMAL [None]
  - HYPERAESTHESIA [None]
  - HYPERSENSITIVITY [None]
